FAERS Safety Report 5690576-9 (Version None)
Quarter: 2008Q1

REPORT INFORMATION
  Report Type: 
  Country: None (occurrence: None)
  Receive Date: 20080331
  Receipt Date: 20080331
  Transmission Date: 20080703
  Serious: Yes (Other)
  Sender: FDA-Public Use
  Company Number: None

PATIENT
  Sex: Male
  Weight: 38.5557 kg

DRUGS (2)
  1. SINGULAIR [Suspect]
     Indication: HYPERSENSITIVITY
     Dosage: 5 MG 1 TIME PER DAY PO
     Route: 048
     Dates: start: 20050101, end: 20080115
  2. SINGULAIR [Suspect]
     Indication: SINUS DISORDER
     Dosage: 5 MG 1 TIME PER DAY PO
     Route: 048
     Dates: start: 20050101, end: 20080115

REACTIONS (5)
  - AGGRESSION [None]
  - ANGER [None]
  - BITE [None]
  - EMOTIONAL DISORDER [None]
  - IRRITABILITY [None]
